FAERS Safety Report 6140116-5 (Version None)
Quarter: 2009Q2

REPORT INFORMATION
  Report Type: 
  Country: None (occurrence: None)
  Receive Date: 20090401
  Receipt Date: 20090323
  Transmission Date: 20091009
  Serious: Yes (Death)
  Sender: FDA-Public Use
  Company Number: FR-BAYER-200916870GPV

PATIENT
  Age: 53 Year
  Sex: Female

DRUGS (13)
  1. CIPROFLOXACIN HCL [Suspect]
     Indication: PANCYTOPENIA
     Dosage: UNIT DOSE: 200 MG
     Route: 042
     Dates: start: 20081215, end: 20081219
  2. SINTROM [Interacting]
     Indication: DRUG USE FOR UNKNOWN INDICATION
     Route: 048
     Dates: end: 20081219
  3. TAZOCILLINE [Interacting]
     Indication: PANCYTOPENIA
     Dosage: UNIT DOSE: 4 G
     Route: 042
     Dates: start: 20081215, end: 20081219
  4. CITALOPRAM SANDOZ [Interacting]
     Indication: DEPRESSION
     Route: 048
     Dates: start: 20081215, end: 20081219
  5. CORTANCYL [Concomitant]
     Indication: DRUG USE FOR UNKNOWN INDICATION
     Route: 065
     Dates: end: 20081219
  6. INIPOMP [Concomitant]
     Indication: DRUG USE FOR UNKNOWN INDICATION
     Route: 065
     Dates: end: 20081219
  7. IMOVANE [Concomitant]
     Indication: DRUG USE FOR UNKNOWN INDICATION
     Route: 065
     Dates: end: 20081219
  8. OSTRAM [Concomitant]
     Indication: DRUG USE FOR UNKNOWN INDICATION
     Route: 065
     Dates: end: 20081219
  9. DEROXAT [Concomitant]
     Indication: DRUG USE FOR UNKNOWN INDICATION
     Route: 065
     Dates: end: 20081215
  10. FOSAMAX [Concomitant]
     Indication: DRUG USE FOR UNKNOWN INDICATION
     Route: 065
     Dates: end: 20081219
  11. GLUCONATE SODIUM [Concomitant]
     Indication: DRUG USE FOR UNKNOWN INDICATION
     Route: 065
     Dates: end: 20081219
  12. LAMICTAL [Concomitant]
     Indication: DRUG USE FOR UNKNOWN INDICATION
     Route: 065
     Dates: end: 20081219
  13. RED BLOOD CELLS [Concomitant]
     Indication: ANAEMIA
     Dosage: 2 PACKS
     Route: 065

REACTIONS (6)
  - CONVULSION [None]
  - FALL [None]
  - HEAD INJURY [None]
  - INTERNATIONAL NORMALISED RATIO INCREASED [None]
  - SUBARACHNOID HAEMORRHAGE [None]
  - SUBDURAL HAEMATOMA [None]
